FAERS Safety Report 14673496 (Version 3)
Quarter: 2018Q3

REPORT INFORMATION
  Report Type: Report from Study
  Country: US (occurrence: US)
  Receive Date: 20180323
  Receipt Date: 20180813
  Transmission Date: 20181010
  Serious: Yes (Hospitalization, Other)
  Sender: FDA-Public Use
  Company Number: US-GILEAD-2018-0327896

PATIENT
  Age: 84 Year
  Sex: Female

DRUGS (3)
  1. AMBRISENTAN [Suspect]
     Active Substance: AMBRISENTAN
     Indication: PULMONARY HYPERTENSION
     Dosage: 5 MG, QD
     Route: 065
  2. AMBRISENTAN [Suspect]
     Active Substance: AMBRISENTAN
     Dosage: 10 MG, QD
     Route: 065
     Dates: start: 20180222
  3. ADCIRCA [Suspect]
     Active Substance: TADALAFIL
     Indication: PULMONARY HYPERTENSION
     Dosage: 20 MG, QD
     Route: 065
     Dates: start: 20180302

REACTIONS (7)
  - Dyspnoea [Unknown]
  - Hypoacusis [Unknown]
  - Rash pruritic [Recovering/Resolving]
  - Atrial fibrillation [Unknown]
  - Nasal congestion [Not Recovered/Not Resolved]
  - Ill-defined disorder [Unknown]
  - Frequent bowel movements [Unknown]

NARRATIVE: CASE EVENT DATE: 20180306
